FAERS Safety Report 15907218 (Version 6)
Quarter: 2022Q1

REPORT INFORMATION
  Report Type: Spontaneous
  Country: US (occurrence: US)
  Receive Date: 20190204
  Receipt Date: 20220317
  Transmission Date: 20220423
  Serious: Yes (Other)
  Sender: FDA-Public Use
  Company Number: US-PFIZER INC-2019050262

PATIENT
  Age: 69 Year
  Sex: Female

DRUGS (1)
  1. ATORVASTATIN CALCIUM [Suspect]
     Active Substance: ATORVASTATIN CALCIUM
     Indication: Hyperlipidaemia
     Dosage: UNK
     Dates: start: 2016

REACTIONS (6)
  - Depression [Unknown]
  - Asthenia [Unknown]
  - Pain [Unknown]
  - Drug hypersensitivity [Unknown]
  - Muscular weakness [Unknown]
  - Myalgia [Unknown]
